FAERS Safety Report 6874678-7 (Version None)
Quarter: 2010Q3

REPORT INFORMATION
  Report Type: 
  Country: None (occurrence: None)
  Receive Date: 20100722
  Receipt Date: 20100714
  Transmission Date: 20110219
  Serious: Yes (Life-Threatening, Hospitalization, Other)
  Sender: FDA-Public Use
  Company Number: DSA_43318_2010

PATIENT
  Sex: Female

DRUGS (8)
  1. XENAZINE [Suspect]
     Indication: HUNTINGTON'S DISEASE
     Dosage: (25 MG TID ORAL), (25 MG BID ORAL)
     Route: 048
     Dates: start: 20100501, end: 20100101
  2. XENAZINE [Suspect]
     Indication: HUNTINGTON'S DISEASE
     Dosage: (25 MG TID ORAL), (25 MG BID ORAL)
     Route: 048
     Dates: start: 20100101, end: 20100701
  3. ORAP [Concomitant]
  4. VLAIUM /00266901/ [Concomitant]
  5. GLYCOPYRROLATE /00196202/ [Concomitant]
  6. ASPIRIN [Concomitant]
  7. ZOCOR [Concomitant]
  8. NAMENDA [Concomitant]

REACTIONS (13)
  - APHAGIA [None]
  - APHASIA [None]
  - CEREBRAL DISORDER [None]
  - DEPRESSION [None]
  - DYSARTHRIA [None]
  - DYSKINESIA [None]
  - DYSPHAGIA [None]
  - GAIT DISTURBANCE [None]
  - KIDNEY INFECTION [None]
  - MOVEMENT DISORDER [None]
  - THERAPEUTIC RESPONSE UNEXPECTED [None]
  - URINARY TRACT INFECTION [None]
  - WEIGHT DECREASED [None]
